FAERS Safety Report 4301536-4 (Version None)
Quarter: 2004Q1

REPORT INFORMATION
  Report Type: 
  Country: None (occurrence: None)
  Receive Date: 20040126
  Receipt Date: 20031001
  Transmission Date: 20041129
  Serious: No
  Sender: FDA-Public Use
  Company Number: USA031048714

PATIENT
  Age: 5 Year
  Sex: Female
  Weight: 25 kg

DRUGS (3)
  1. STRATTERA [Suspect]
     Indication: ATTENTION DEFICIT/HYPERACTIVITY DISORDER
     Dosage: 80 MG/DAY
     Dates: start: 20030801
  2. CLONIDINE [Concomitant]
  3. LEXAPRO [Concomitant]

REACTIONS (1)
  - PRESCRIBED OVERDOSE [None]
